FAERS Safety Report 4662584-8 (Version None)
Quarter: 2005Q2

REPORT INFORMATION
  Report Type: 
  Country: None (occurrence: None)
  Receive Date: 20050516
  Receipt Date: 20041216
  Transmission Date: 20051028
  Serious: Yes (Other)
  Sender: FDA-Public Use
  Company Number: 2004AC01043

PATIENT
  Age: 637 Month
  Sex: Male

DRUGS (3)
  1. NEXIUM [Suspect]
     Route: 048
     Dates: start: 20041028, end: 20041101
  2. CELEBREX [Concomitant]
     Dates: start: 20041028
  3. MYOLASTAN [Concomitant]

REACTIONS (2)
  - ACCOMMODATION DISORDER [None]
  - VISUAL DISTURBANCE [None]
